FAERS Safety Report 8030451 (Version 6)
Quarter: 2012Q4

REPORT INFORMATION
  Report Type: Report from Study
  Country: JP (occurrence: JP)
  Receive Date: 20110712
  Receipt Date: 20120831
  Transmission Date: 20130627
  Serious: Yes (Death, Hospitalization, Other)
  Sender: FDA-Public Use
  Company Number: JP-GENZYME-THYM-1002587

PATIENT
  Age: 60 Year
  Sex: Female
  Weight: 41 kg

DRUGS (15)
  1. THYMOGLOBULIN [Suspect]
     Indication: BONE MARROW CONDITIONING REGIMEN
     Dosage: 50 mg, qd
     Route: 042
     Dates: start: 20110110, end: 20110110
  2. FLUDARA [Suspect]
     Indication: ADULT T-CELL LYMPHOMA/LEUKAEMIA
     Dosage: 40 mg, qd
     Route: 042
     Dates: start: 20110104, end: 20110109
  3. METHYLPREDNISOLONE SODIUM SUCCINATE [Suspect]
     Indication: PYREXIA
     Dosage: UNK
     Route: 065
  4. BUSULFAN [Concomitant]
     Indication: ADULT T-CELL LYMPHOMA/LEUKAEMIA
     Dosage: UNK
     Route: 042
     Dates: start: 20110106, end: 20110107
  5. TACROLIMUS [Concomitant]
     Indication: PROPHYLAXIS AGAINST GRAFT VERSUS HOST DISEASE
     Dosage: UNK
     Route: 065
     Dates: start: 20110111, end: 20110325
  6. METHOTREXATE [Concomitant]
     Indication: PROPHYLAXIS AGAINST GRAFT VERSUS HOST DISEASE
     Dosage: UNK
     Route: 065
     Dates: start: 20110113, end: 20110113
  7. METHOTREXATE [Concomitant]
     Dosage: UNK
     Route: 065
     Dates: start: 20110115, end: 20110115
  8. METHOTREXATE [Concomitant]
     Dosage: UNK
     Route: 065
     Dates: start: 20110118, end: 20110118
  9. METHOTREXATE [Concomitant]
     Dosage: UNK
     Route: 065
     Dates: start: 20110128, end: 20110128
  10. FILGRASTIM [Concomitant]
     Indication: INFECTION PROPHYLAXIS
     Dosage: UNK
     Route: 065
     Dates: start: 20110118, end: 20110203
  11. CIPROFLOXACIN [Concomitant]
     Indication: INFECTION PROPHYLAXIS
     Dosage: UNK
     Route: 065
     Dates: start: 20110105, end: 20110203
  12. FLUCONAZOLE [Concomitant]
     Indication: INFECTION PROPHYLAXIS
     Dosage: UNK
     Route: 065
     Dates: start: 20110106, end: 20110325
  13. ACICLOVIR [Concomitant]
     Indication: INFECTION PROPHYLAXIS
     Dosage: UNK
     Route: 065
     Dates: start: 20110106, end: 20110325
  14. SULFAMETHOPRIM [Concomitant]
     Indication: INFECTION PROPHYLAXIS
     Dosage: UNK
     Route: 065
  15. CEFEPIME HYDROCHLORIDE [Concomitant]
     Indication: PROPHYLAXIS
     Dosage: UNK
     Route: 065
     Dates: start: 2010, end: 20110110

REACTIONS (6)
  - Histiocytosis haematophagic [Fatal]
  - Febrile neutropenia [Recovered/Resolved]
  - Graft versus host disease [Unknown]
  - Viral infection [Fatal]
  - Staphylococcal infection [Recovered/Resolved]
  - Engraftment syndrome [Recovered/Resolved]
